FAERS Safety Report 9264889 (Version 2)
Quarter: 2013Q2

REPORT INFORMATION
  Report Type: Report from Study
  Country: CA (occurrence: CA)
  Receive Date: 20130501
  Receipt Date: 20130506
  Transmission Date: 20140414
  Serious: Yes (Death)
  Sender: FDA-Public Use
  Company Number: PHHY2013CA042900

PATIENT
  Age: 69 Year
  Sex: Female

DRUGS (1)
  1. CLOZARIL [Suspect]
     Dosage: UNK
     Dates: start: 20060706

REACTIONS (6)
  - Lung cancer metastatic [Fatal]
  - Metastases to lymph nodes [Fatal]
  - Metastases to adrenals [Fatal]
  - Metastases to the mediastinum [Fatal]
  - Respiratory failure [Fatal]
  - Bronchopneumonia [Fatal]
